FAERS Safety Report 23973297 (Version 1)
Quarter: 2024Q2

REPORT INFORMATION
  Report Type: Spontaneous
  Country: US (occurrence: US)
  Receive Date: 20240613
  Receipt Date: 20240613
  Transmission Date: 20240716
  Serious: Yes (Other)
  Sender: FDA-Public Use
  Company Number: US-SANDOZ-SDZ2024US056733

PATIENT
  Age: 47 Year
  Sex: Female
  Weight: 77 kg

DRUGS (1)
  1. COMBIPATCH [Suspect]
     Active Substance: ESTRADIOL\NORETHINDRONE ACETATE
     Indication: Menopausal symptoms
     Dosage: HALF OF 0.05/0.14 MG PATCH 2/WEEK (EVERY SUNDAY AND THURSDAY)
     Route: 062
     Dates: start: 20231222, end: 20240520

REACTIONS (3)
  - Pulmonary embolism [Recovering/Resolving]
  - Pain in extremity [Recovered/Resolved]
  - Off label use [Recovered/Resolved]

NARRATIVE: CASE EVENT DATE: 20231222
